FAERS Safety Report 5232651-9 (Version None)
Quarter: 2007Q1

REPORT INFORMATION
  Report Type: 
  Country: None (occurrence: None)
  Receive Date: 20070206
  Receipt Date: 20070206
  Transmission Date: 20070707
  Serious: Yes (Hospitalization)
  Sender: FDA-Public Use
  Company Number: None

PATIENT
  Sex: Male
  Weight: 81.6475 kg

DRUGS (6)
  1. NAPROXEN [Suspect]
     Indication: TOOTHACHE
     Dosage: 220 MG PO BID
     Route: 048
     Dates: start: 20061022, end: 20061122
  2. FOSINOPRIL SODIUM [Concomitant]
  3. GLIPIZIDE [Concomitant]
  4. ROSIGLITAZONE [Concomitant]
  5. SIMVASTATIN [Concomitant]
  6. RANITIDINE [Concomitant]

REACTIONS (4)
  - DRUG ADMINISTRATION ERROR [None]
  - DUODENAL ULCER [None]
  - GASTROINTESTINAL HAEMORRHAGE [None]
  - OCCULT BLOOD POSITIVE [None]
